FAERS Safety Report 18932108 (Version 1)
Quarter: 2021Q1

REPORT INFORMATION
  Report Type: Spontaneous
  Country: US (occurrence: US)
  Receive Date: 20210223
  Receipt Date: 20210223
  Transmission Date: 20210420
  Serious: No
  Sender: FDA-Public Use
  Company Number: US-ROCHE-2730646

PATIENT
  Sex: Male

DRUGS (2)
  1. ZYRTEC (UNITED STATES) [Concomitant]
  2. EVRYSDI [Suspect]
     Active Substance: RISDIPLAM
     Indication: SPINAL MUSCULAR ATROPHY
     Route: 048
     Dates: start: 20200101

REACTIONS (2)
  - Depressed mood [Unknown]
  - Sedation [Unknown]

NARRATIVE: CASE EVENT DATE: 2020
